FAERS Safety Report 15365619 (Version 1)
Quarter: 2018Q3

REPORT INFORMATION
  Report Type: Spontaneous
  Country: US (occurrence: US)
  Receive Date: 20180910
  Receipt Date: 20180910
  Transmission Date: 20181010
  Serious: Yes (Hospitalization)
  Sender: FDA-Public Use
  Company Number: US-SA-2018SA247383

PATIENT
  Age: 71 Year
  Sex: Female

DRUGS (1)
  1. AUBAGIO [Suspect]
     Active Substance: TERIFLUNOMIDE
     Indication: MULTIPLE SCLEROSIS
     Dosage: 14 MG, QD
     Route: 048
     Dates: start: 20160830

REACTIONS (5)
  - Fall [Unknown]
  - Concussion [Unknown]
  - Defiant behaviour [Unknown]
  - Confusional state [Unknown]
  - Head injury [Unknown]

NARRATIVE: CASE EVENT DATE: 201808
